FAERS Safety Report 8290441 (Version 6)
Quarter: 2012Q4

REPORT INFORMATION
  Report Type: Report from Study
  Country: DE (occurrence: DE)
  Receive Date: 20111214
  Receipt Date: 20121210
  Transmission Date: 20130627
  Serious: Yes (Life-Threatening, Hospitalization)
  Sender: FDA-Public Use
  Company Number: DE-BRISTOL-MYERS SQUIBB COMPANY-16284424

PATIENT
  Age: 46 Year
  Sex: Male
  Weight: 47 kg

DRUGS (7)
  1. CETUXIMAB [Suspect]
     Indication: HEAD AND NECK CANCER
     Dosage: Started 12Jul11-Unk: 368.25mg. 22Nov11+23Nov11: 604.8mg.
     Dates: start: 20110712
  2. CISPLATIN [Suspect]
     Indication: HEAD AND NECK CANCER
     Dosage: Started: 12Jul11-Unk 33.14mg, 22Nov11+23Nov11: 45.36mg.
     Dates: start: 20110712
  3. DOCETAXEL [Suspect]
     Indication: HEAD AND NECK CANCER
     Dosage: Started: 12Jul11-Unk 44.19mg-Unk, 22Nov11+23Nov11: 60.48mg.
     Dates: start: 20110712
  4. 5-FLUOROURACIL [Suspect]
     Indication: HEAD AND NECK CANCER
     Dosage: Started: 12Jul11-Unk 1104mg, 22Nov11+23Nov11: 1512mg.
     Dates: start: 20110712
  5. DEXAMETHASONE [Concomitant]
     Indication: ANTIINFLAMMATORY THERAPY
     Dosage: 1df: 8 units nos.
     Dates: start: 20111122, end: 20120125
  6. FENISTIL [Concomitant]
     Indication: ANTIALLERGIC THERAPY
     Dosage: 1df: 1 units nos.
     Dates: start: 20111122, end: 20120125
  7. KEVATRIL [Concomitant]
     Indication: ANTIEMETIC SUPPORTIVE CARE
     Dosage: 1df: 3 units nos.
     Dates: start: 20111122, end: 20120125

REACTIONS (2)
  - Neutropenia [Recovered/Resolved]
  - Leukopenia [Recovered/Resolved]
